FAERS Safety Report 7933261-2 (Version None)
Quarter: 2011Q4

REPORT INFORMATION
  Report Type: 
  Country: None (occurrence: None)
  Receive Date: 20111122
  Receipt Date: 20111108
  Transmission Date: 20120403
  Serious: Yes (Other)
  Sender: FDA-Public Use
  Company Number: PHHY2011US15113

PATIENT
  Sex: Female

DRUGS (8)
  1. TASIGNA [Suspect]
     Indication: CHRONIC MYELOID LEUKAEMIA
     Dosage: 400 MG, BID
     Route: 048
     Dates: start: 20090912
  2. COENZYME Q10 [Concomitant]
  3. FISH OIL [Concomitant]
  4. ZYRTEC [Concomitant]
  5. NEXIUM [Concomitant]
  6. COD-LIVER OIL [Concomitant]
  7. TRICOR [Concomitant]
  8. CALCIUM [Concomitant]

REACTIONS (19)
  - COORDINATION ABNORMAL [None]
  - MUSCULOSKELETAL DISCOMFORT [None]
  - GASTROOESOPHAGEAL REFLUX DISEASE [None]
  - COUGH [None]
  - RHINORRHOEA [None]
  - RETCHING [None]
  - NAUSEA [None]
  - LUNG DISORDER [None]
  - OSTEOPENIA [None]
  - PLATELET COUNT DECREASED [None]
  - DECREASED APPETITE [None]
  - GINGIVAL BLEEDING [None]
  - ERUCTATION [None]
  - FATIGUE [None]
  - MEMORY IMPAIRMENT [None]
  - ABDOMINAL DISCOMFORT [None]
  - PAIN [None]
  - DYSPNOEA [None]
  - EPISTAXIS [None]
